FAERS Safety Report 7457537-0 (Version None)
Quarter: 2011Q1

REPORT INFORMATION
  Report Type: 
  Country: None (occurrence: None)
  Receive Date: 20110302
  Receipt Date: 20101112
  Transmission Date: 20110831
  Serious: Yes (Death, Other)
  Sender: FDA-Public Use
  Company Number: 163-21880-10112007

PATIENT
  Age: 60 Year
  Sex: Male

DRUGS (10)
  1. FLONASE [Concomitant]
  2. REVLIMID [Suspect]
     Indication: MULTIPLE MYELOMA
     Dosage: 15 MG, 1 IN 1 D, PO
     Route: 048
     Dates: start: 20090601, end: 20100101
  3. COLACE (DOCUSATE SODIUM) [Concomitant]
  4. MORPHINE [Concomitant]
  5. ACETAMINOPHEN [Concomitant]
  6. ATENOLOL [Concomitant]
  7. LASIX [Concomitant]
  8. PRILOSEC [Concomitant]
  9. PROZAC [Concomitant]
  10. LORAZEPAM [Concomitant]

REACTIONS (2)
  - DEATH [None]
  - HAEMOGLOBIN DECREASED [None]
